FAERS Safety Report 11824363 (Version 1)
Quarter: 2015Q4

REPORT INFORMATION
  Report Type: Report from Study
  Country: US (occurrence: US)
  Receive Date: 20151210
  Receipt Date: 20151210
  Transmission Date: 20160305
  Serious: Yes (Other)
  Sender: FDA-Public Use
  Company Number: US-MUNDIPHARMA DS AND PHARMACOVIGILANCE-USA-2015-0127857

PATIENT
  Sex: Female

DRUGS (3)
  1. BTDS PATCH [Suspect]
     Active Substance: BUPRENORPHINE
     Indication: SPINAL OSTEOARTHRITIS
  2. BTDS PATCH [Suspect]
     Active Substance: BUPRENORPHINE
     Indication: BACK PAIN
     Dosage: 20 MCG/HR, WEEKLY
     Route: 062
  3. BTDS PATCH [Suspect]
     Active Substance: BUPRENORPHINE
     Indication: PAIN

REACTIONS (3)
  - Visual impairment [Unknown]
  - Inappropriate schedule of drug administration [Unknown]
  - Corneal lesion [Unknown]
